FAERS Safety Report 12430002 (Version 1)
Quarter: 2016Q2

REPORT INFORMATION
  Report Type: Spontaneous
  Country: US (occurrence: US)
  Receive Date: 20160602
  Receipt Date: 20160602
  Transmission Date: 20160815
  Serious: No
  Sender: FDA-Public Use
  Company Number: US-KADMON PHARMACEUTICALS, LLC-KAD201512-004242

PATIENT
  Sex: Female

DRUGS (3)
  1. VIEKIRA PAK [Suspect]
     Active Substance: DASABUVIR\OMBITASVIR\PARITAPREVIR\RITONAVIR
     Indication: HEPATITIS C
     Route: 048
  2. RIBAVIRIN. [Suspect]
     Active Substance: RIBAVIRIN
     Indication: HEPATITIS C
     Route: 048
  3. BACLOFEN. [Concomitant]
     Active Substance: BACLOFEN

REACTIONS (7)
  - Fatigue [Unknown]
  - Malaise [Unknown]
  - Transfusion [Unknown]
  - Feeling abnormal [Unknown]
  - Tremor [Unknown]
  - Vomiting [Unknown]
  - Nausea [Unknown]
